FAERS Safety Report 7902524-9 (Version None)
Quarter: 2011Q4

REPORT INFORMATION
  Report Type: 
  Country: None (occurrence: None)
  Receive Date: 20111108
  Receipt Date: 20111026
  Transmission Date: 20120403
  Serious: No
  Sender: FDA-Public Use
  Company Number: US-ELI_LILLY_AND_COMPANY-US201010000431

PATIENT
  Sex: Female

DRUGS (13)
  1. SYNTHROID [Concomitant]
  2. FORTEO [Suspect]
     Indication: OSTEOPOROSIS
     Dosage: 20 UG, DAILY (1/D)
     Route: 058
     Dates: start: 20100407
  3. CALCIUM [Concomitant]
  4. ZANTAC [Concomitant]
  5. PLAQUENIL [Concomitant]
  6. MULTI-VITAMIN [Concomitant]
  7. ZOLOFT [Concomitant]
  8. FORTEO [Suspect]
     Dosage: 20 UG, QD
     Route: 058
  9. FORTEO [Suspect]
     Dosage: 20 UG, QD
     Route: 058
  10. NEURONTIN [Concomitant]
  11. ATIVAN [Concomitant]
  12. VITAMIN D [Concomitant]
  13. MULTIVITAMIN [Concomitant]

REACTIONS (12)
  - NEUROPATHY PERIPHERAL [None]
  - OVERDOSE [None]
  - MUSCLE SPASMS [None]
  - OEDEMA PERIPHERAL [None]
  - BODY HEIGHT DECREASED [None]
  - BACK PAIN [None]
  - LASER THERAPY [None]
  - HYPOKALAEMIA [None]
  - SOMNOLENCE [None]
  - INJECTION SITE PAIN [None]
  - LAZINESS [None]
  - WEIGHT INCREASED [None]
